FAERS Safety Report 9002275 (Version 2)
Quarter: 2013Q3

REPORT INFORMATION
  Report Type: Spontaneous
  Country: US (occurrence: US)
  Receive Date: 20130107
  Receipt Date: 20130928
  Transmission Date: 20140515
  Serious: Yes (Life-Threatening, Disabling, Other)
  Sender: FDA-Public Use
  Company Number: US-BAYER-2013-000917

PATIENT
  Age: 28 Year
  Sex: Female

DRUGS (5)
  1. BEYAZ [Suspect]
  2. YAZ [Suspect]
  3. YASMIN [Suspect]
  4. GIANVI [Suspect]
  5. OCELLA [Suspect]

REACTIONS (11)
  - Injury [None]
  - Thrombosis [None]
  - Thrombosis [None]
  - Venous thrombosis [None]
  - Deep vein thrombosis [None]
  - Pain [None]
  - General physical health deterioration [None]
  - Anxiety [None]
  - Emotional distress [None]
  - Anhedonia [None]
  - Pain [None]
